FAERS Safety Report 20443514 (Version 1)
Quarter: 2022Q1

REPORT INFORMATION
  Report Type: Spontaneous
  Country: US (occurrence: None)
  Receive Date: 20220207
  Receipt Date: 20220207
  Transmission Date: 20220424
  Serious: Yes (Disabling)
  Sender: FDA-Public Use
  Company Number: None

PATIENT
  Age: 73 Year
  Sex: Male
  Weight: 108 kg

DRUGS (1)
  1. AMIODARONE HYDROCHLORIDE [Suspect]
     Active Substance: AMIODARONE HYDROCHLORIDE
     Indication: Cardiac ablation
     Dosage: FREQUENCY : DAILY;?
     Route: 048
     Dates: start: 20210325, end: 20210710

REACTIONS (4)
  - Hypothyroidism [None]
  - Balance disorder [None]
  - Walking aid user [None]
  - Scab [None]

NARRATIVE: CASE EVENT DATE: 20211012
